FAERS Safety Report 25124385 (Version 1)
Quarter: 2025Q1

REPORT INFORMATION
  Report Type: Report from Study
  Country: US (occurrence: US)
  Receive Date: 20250326
  Receipt Date: 20250326
  Transmission Date: 20250409
  Serious: Yes (Other)
  Sender: TAKEDA
  Company Number: US-TAKEDA-2025TUS029710

PATIENT
  Sex: Female

DRUGS (13)
  1. FRUQUINTINIB [Suspect]
     Active Substance: FRUQUINTINIB
     Indication: Colon cancer
     Dosage: 5 MILLIGRAM, QD
     Dates: start: 202502
  2. FRUQUINTINIB [Suspect]
     Active Substance: FRUQUINTINIB
     Dosage: 4 MILLIGRAM, QD
  3. ALENDRONATE [Concomitant]
     Active Substance: ALENDRONATE SODIUM
  4. BUSPIRONE [Concomitant]
     Active Substance: BUSPIRONE HYDROCHLORIDE
  5. DIPHENOXYLATE [Concomitant]
     Active Substance: DIPHENOXYLATE
  6. ATROPINE [Concomitant]
     Active Substance: ATROPINE
  7. DONEPEZIL [Concomitant]
     Active Substance: DONEPEZIL
  8. ONDANSETRON [Concomitant]
     Active Substance: ONDANSETRON
  9. POTASSIUM CHLORIDE [Concomitant]
     Active Substance: POTASSIUM CHLORIDE
  10. PREGABALIN [Concomitant]
     Active Substance: PREGABALIN
  11. VITAMIN C [Concomitant]
     Active Substance: ASCORBIC ACID
  12. VITAMIN D2 [Concomitant]
     Active Substance: ERGOCALCIFEROL
  13. VITAMIN B12 [Concomitant]
     Active Substance: CYANOCOBALAMIN

REACTIONS (4)
  - Neuropathy peripheral [Unknown]
  - Brain fog [Unknown]
  - Fatigue [Unknown]
  - Decreased appetite [Unknown]
